FAERS Safety Report 9158480 (Version 3)
Quarter: 2013Q2

REPORT INFORMATION
  Report Type: Spontaneous
  Country: US (occurrence: US)
  Receive Date: 20130312
  Receipt Date: 20130430
  Transmission Date: 20140414
  Serious: Yes (Death)
  Sender: FDA-Public Use
  Company Number: US-GILEAD-2013-0071418

PATIENT
  Sex: Female

DRUGS (2)
  1. LETAIRIS [Suspect]
     Indication: PULMONARY HYPERTENSION
     Dosage: 5 MG, UNK
     Route: 048
     Dates: start: 20121012, end: 20130303
  2. LETAIRIS [Suspect]
     Indication: SCLERODERMA

REACTIONS (5)
  - Right ventricular dysfunction [Fatal]
  - Pulmonary oedema [Fatal]
  - Unevaluable event [Fatal]
  - Lung disorder [Fatal]
  - Pneumothorax spontaneous [Fatal]
